FAERS Safety Report 9353488 (Version 5)
Quarter: 2014Q3

REPORT INFORMATION
  Report Type: Spontaneous
  Country: US (occurrence: US)
  Receive Date: 20130618
  Receipt Date: 20140822
  Transmission Date: 20150326
  Serious: Yes (Hospitalization, Disabling, Other)
  Sender: FDA-Public Use
  Company Number: US-009507513-1201USA00772

PATIENT
  Sex: Female
  Weight: 63.49 kg

DRUGS (3)
  1. ACIPHEX [Concomitant]
     Active Substance: RABEPRAZOLE SODIUM
     Indication: GASTROOESOPHAGEAL REFLUX DISEASE
     Dosage: UNK
     Dates: start: 200612, end: 201104
  2. FOSAMAX [Suspect]
     Active Substance: ALENDRONATE SODIUM
     Indication: OSTEOPOROSIS
     Dosage: 70 MG, QW
     Route: 048
     Dates: start: 200207, end: 2011
  3. ALENDRONATE SODIUM. [Suspect]
     Active Substance: ALENDRONATE SODIUM
     Dosage: 70 MG, UNK

REACTIONS (36)
  - Spinal osteoarthritis [Unknown]
  - Carotid artery disease [Unknown]
  - Hypertension [Unknown]
  - Exostosis [Unknown]
  - Adverse event [Unknown]
  - Gait disturbance [Unknown]
  - Knee arthroplasty [Unknown]
  - Impaired healing [Unknown]
  - Pain in extremity [Unknown]
  - Spinal disorder [Unknown]
  - Nervousness [Unknown]
  - Arthritis [Unknown]
  - Chondroplasty [Unknown]
  - Chronic obstructive pulmonary disease [Unknown]
  - Goitre [Unknown]
  - Intramedullary rod insertion [Unknown]
  - Osteosclerosis [Unknown]
  - Carpal tunnel syndrome [Unknown]
  - Osteoarthritis [Unknown]
  - Intervertebral disc operation [Unknown]
  - Medical device removal [Unknown]
  - Dental prosthesis user [Unknown]
  - Knee arthroplasty [Unknown]
  - Aphasia [Unknown]
  - Arthroscopy [Unknown]
  - Meniscus injury [Unknown]
  - Osteoarthritis [Unknown]
  - Shoulder operation [Unknown]
  - Thyroid neoplasm [Unknown]
  - Thyroid disorder [Unknown]
  - Fall [Unknown]
  - Muscle strain [Unknown]
  - Osteopenia [Unknown]
  - Femur fracture [Recovering/Resolving]
  - Myelomalacia [Unknown]
  - Peripheral swelling [Unknown]

NARRATIVE: CASE EVENT DATE: 2002
